FAERS Safety Report 18689947 (Version 1)
Quarter: 2020Q4

REPORT INFORMATION
  Report Type: Spontaneous
  Country: FR (occurrence: FR)
  Receive Date: 20201231
  Receipt Date: 20201231
  Transmission Date: 20210114
  Serious: Yes (Hospitalization)
  Sender: FDA-Public Use
  Company Number: FR-TEVA-2020-FR-1863690

PATIENT
  Age: 73 Year
  Sex: Male
  Weight: 93.2 kg

DRUGS (11)
  1. HYDROCHLOROTHIAZIDE. [Concomitant]
     Active Substance: HYDROCHLOROTHIAZIDE
     Indication: HYPERTENSION
     Dosage: UNIT DOSE : 12.5 MG
     Route: 048
     Dates: end: 20200527
  2. IRBESARTAN. [Concomitant]
     Active Substance: IRBESARTAN
     Indication: HYPERTENSION
     Dosage: UNIT DOSE : 300 MG
     Route: 048
     Dates: end: 20200528
  3. LANTUS [Concomitant]
     Active Substance: INSULIN GLARGINE
     Indication: DIABETES MELLITUS
     Dosage: UNIT DOSE : 42 IU
     Route: 058
  4. DILTIAZEM (CHLORHYDRATE DE) [Concomitant]
     Active Substance: DILTIAZEM HYDROCHLORIDE
     Indication: HYPERTENSION
     Dosage: UNIT DOSE : 200 MG
     Route: 048
  5. MEDIATENSYL 30 MG, GELULE [Concomitant]
     Indication: HYPERTENSION
     Dosage: UNIT DOSE : 60 MG
     Route: 048
  6. TRULICITY [Concomitant]
     Active Substance: DULAGLUTIDE
     Indication: INSULIN-REQUIRING TYPE 2 DIABETES MELLITUS
     Dosage: UNIT DOSE : 1 DOSAGE FORMS
     Route: 058
  7. ACIDE CLAVULANIQUE [Suspect]
     Active Substance: CLAVULANIC ACID
     Indication: LUNG DISORDER
     Dosage: UNIT DOSE : 375 MG
     Route: 048
     Dates: start: 20200525, end: 20200528
  8. METFORMINE [Concomitant]
     Active Substance: METFORMIN HYDROCHLORIDE
     Indication: INSULIN-REQUIRING TYPE 2 DIABETES MELLITUS
     Dosage: UNIT DOSE : 2 GRAM
     Route: 048
     Dates: end: 202005
  9. KARDEGIC [Concomitant]
     Active Substance: ASPIRIN DL-LYSINE
     Indication: PROPHYLAXIS
     Dosage: UNIT DOSE : 1 DOSAGE FORMS
     Route: 048
  10. AMOXICILLINE [Suspect]
     Active Substance: AMOXICILLIN
     Indication: LUNG DISORDER
     Dosage: UNIT DOSE : 3 GRAM
     Route: 048
     Dates: start: 20200512, end: 20200528
  11. ROSUVASTATINE [Concomitant]
     Active Substance: ROSUVASTATIN
     Indication: DYSLIPIDAEMIA
     Dosage: UNIT DOSE : 5 MG
     Route: 048

REACTIONS (2)
  - Acute kidney injury [Recovered/Resolved]
  - Diarrhoea [Recovered/Resolved]

NARRATIVE: CASE EVENT DATE: 20200525
